FAERS Safety Report 20633486 (Version 1)
Quarter: 2022Q1

REPORT INFORMATION
  Report Type: Other
  Country: None (occurrence: US)
  Receive Date: 20220324
  Receipt Date: 20220324
  Transmission Date: 20220424
  Serious: Yes (Hospitalization)
  Sender: FDA-Public Use
  Company Number: US-Larken Laboratories, Inc.-2127088

PATIENT
  Age: 43 Year
  Sex: Female
  Weight: 57.7 kg

DRUGS (1)
  1. DOXYCYCLINE HYCLATE [Suspect]
     Active Substance: DOXYCYCLINE HYCLATE
     Indication: Acne
     Route: 048

REACTIONS (1)
  - Cholestasis [Recovered/Resolved]
